FAERS Safety Report 6133207-6 (Version None)
Quarter: 2009Q1

REPORT INFORMATION
  Report Type: 
  Country: None (occurrence: None)
  Receive Date: 20090324
  Receipt Date: 20090324
  Transmission Date: 20090719
  Serious: No
  Sender: FDA-Public Use
  Company Number: None

PATIENT
  Age: 86 Year
  Sex: Male
  Weight: 77.1115 kg

DRUGS (2)
  1. MIRTAZAPINE [Suspect]
     Indication: AMNESIA
     Dosage: 15 MG 1XDAILY PO
     Route: 048
     Dates: start: 20090316, end: 20090320
  2. MIRTAZAPINE [Suspect]
     Indication: CONFUSIONAL STATE
     Dosage: 15 MG 1XDAILY PO
     Route: 048
     Dates: start: 20090316, end: 20090320

REACTIONS (1)
  - NIGHTMARE [None]
